FAERS Safety Report 14624161 (Version 1)
Quarter: 2018Q1

REPORT INFORMATION
  Report Type: Spontaneous
  Country: None (occurrence: ES)
  Receive Date: 20180312
  Receipt Date: 20180312
  Transmission Date: 20180509
  Serious: Yes (Other)
  Sender: FDA-Public Use
  Company Number: ES-FRESENIUS KABI-FK201802706

PATIENT
  Age: 49 Year
  Sex: Female
  Weight: 55 kg

DRUGS (5)
  1. ONDANSETRON [Concomitant]
     Active Substance: ONDANSETRON
     Indication: CYSTADENOCARCINOMA OVARY
     Route: 042
     Dates: start: 20170718
  2. DEXAMETASONA [Concomitant]
     Active Substance: DEXAMETHASONE
     Indication: CYSTADENOCARCINOMA OVARY
     Route: 042
     Dates: start: 20170718
  3. DEXCLORFENIRAMINA MALEATO [Concomitant]
     Indication: CYSTADENOCARCINOMA OVARY
     Route: 042
     Dates: start: 20170718
  4. RANITIDINA HIDROCLORURO [Concomitant]
     Indication: CYSTADENOCARCINOMA OVARY
     Route: 042
     Dates: start: 20170718
  5. PACLITAXEL (MANUFACTURER UNKNOWN) [Suspect]
     Active Substance: PACLITAXEL
     Indication: CYSTADENOCARCINOMA OVARY
     Route: 042
     Dates: start: 20170718, end: 20170718

REACTIONS (3)
  - Infusion related reaction [Recovered/Resolved]
  - Hypotension [Recovered/Resolved]
  - Oxygen saturation decreased [Recovered/Resolved]

NARRATIVE: CASE EVENT DATE: 20170718
